FAERS Safety Report 10146027 (Version 1)
Quarter: 2014Q2

REPORT INFORMATION
  Report Type: Spontaneous
  Country: US (occurrence: None)
  Receive Date: 20140430
  Receipt Date: 20140430
  Transmission Date: 20141212
  Serious: Yes (Death)
  Sender: FDA-Public Use
  Company Number: None

PATIENT
  Age: 94 Year
  Sex: Female
  Weight: 61.8 kg

DRUGS (7)
  1. ADCIRCA 20MG ELI LILLY [Suspect]
     Indication: PULMONARY HYPERTENSION
     Route: 048
  2. DULCOLAX [Concomitant]
  3. HOME OXYGEN [Concomitant]
  4. ALBUTEROL IPRATROPIUM [Concomitant]
  5. ASPRIN [Concomitant]
  6. FUROSEMIDE [Concomitant]
  7. RAMIPRIL [Concomitant]

REACTIONS (8)
  - Chest pain [None]
  - Tremor [None]
  - Cough [None]
  - Respiratory tract congestion [None]
  - Confusional state [None]
  - Asthenia [None]
  - Dyskinesia [None]
  - Eye disorder [None]
